FAERS Safety Report 9827663 (Version 1)
Quarter: 2014Q1

REPORT INFORMATION
  Report Type: Spontaneous
  Country: DE (occurrence: DE)
  Receive Date: 20140117
  Receipt Date: 20140117
  Transmission Date: 20141002
  Serious: Yes (Death)
  Sender: FDA-Public Use
  Company Number: DE-PFIZER INC-2014013335

PATIENT
  Age: 62 Year
  Sex: Male
  Weight: 70 kg

DRUGS (15)
  1. LYRICA [Suspect]
     Indication: PAIN
     Dosage: 50 MG, 2X/DAY
     Route: 048
     Dates: start: 20131219, end: 20131220
  2. MORPHINE [Suspect]
     Indication: METASTASES TO BONE
     Dosage: 24-40MG/DAY
  3. AMITRIPTYLINE [Concomitant]
     Indication: PAIN
     Dosage: 25 MG/DIE
     Route: 048
  4. ARCOXIA [Concomitant]
     Indication: PAIN
     Dosage: 60 MG, 2X/DAY
     Route: 048
  5. PREDNISOLON [Concomitant]
     Dosage: 10 UND 5 MG /DIE
     Route: 048
  6. XTANDI [Concomitant]
     Dosage: 160 MG, 1X/DAY
     Route: 048
  7. OMEPRAZOL [Concomitant]
     Indication: PROPHYLAXIS AGAINST GASTROINTESTINAL ULCER
     Dosage: 20 MG, 2X/DAY
  8. ALLOPURINOL [Concomitant]
     Indication: PROPHYLAXIS
     Dosage: 300 MG, 1X/DAY
     Route: 048
  9. DYTIDE H [Concomitant]
  10. TRANEXAMIC ACID [Concomitant]
     Dosage: 500 MG, 3X/DAY
  11. CLEXANE [Concomitant]
     Dosage: 40 MG, 1X/DAY
  12. ERYTHROPOIETIN [Concomitant]
     Dosage: 20000 IU, WEEKLY
  13. DEKRISTOL [Concomitant]
     Dosage: 20000 IU, WEEKLY
  14. DENOSUMAB [Concomitant]
     Dosage: 1X/MONTH
  15. TRENANTONE [Concomitant]
     Dosage: 1X/MONTH

REACTIONS (6)
  - Renal failure [Fatal]
  - Oliguria [Fatal]
  - Somnolence [Fatal]
  - Vomiting [Fatal]
  - Retching [Fatal]
  - Abdominal distension [Fatal]
